FAERS Safety Report 14108547 (Version 1)
Quarter: 2017Q4

REPORT INFORMATION
  Report Type: Report from Study
  Country: None (occurrence: US)
  Receive Date: 20171019
  Receipt Date: 20171019
  Transmission Date: 20180321
  Serious: Yes (Hospitalization, Other)
  Sender: FDA-Public Use
  Company Number: US-ABBVIE-17K-163-2130131-00

PATIENT
  Age: 62 Year
  Sex: Female

DRUGS (1)
  1. HUMIRA [Suspect]
     Active Substance: ADALIMUMAB
     Indication: RHEUMATOID ARTHRITIS
     Route: 058
     Dates: start: 201603

REACTIONS (10)
  - Thinking abnormal [Unknown]
  - Joint swelling [Unknown]
  - Mobility decreased [Unknown]
  - Yellow skin [Unknown]
  - Blood bilirubin increased [Unknown]
  - Cholelithiasis [Recovered/Resolved]
  - Blood potassium decreased [Recovered/Resolved]
  - Blood sodium decreased [Recovered/Resolved]
  - Peripheral swelling [Unknown]
  - Hepatic mass [Unknown]

NARRATIVE: CASE EVENT DATE: 201710
